FAERS Safety Report 16058275 (Version 2)
Quarter: 2023Q1

REPORT INFORMATION
  Report Type: Report from Study
  Country: JP (occurrence: JP)
  Receive Date: 20190311
  Receipt Date: 20230109
  Transmission Date: 20230418
  Serious: Yes (Death)
  Sender: FDA-Public Use
  Company Number: JP-PFIZER INC-2019103918

PATIENT
  Age: 40 Year
  Sex: Male
  Weight: 52 kg

DRUGS (2)
  1. BESPONSA [Suspect]
     Active Substance: INOTUZUMAB OZOGAMICIN
     Indication: Acute lymphocytic leukaemia
     Dosage: 0.8 MG/M2, 1X/DAY
     Route: 041
     Dates: start: 20190109, end: 20190109
  2. BESPONSA [Suspect]
     Active Substance: INOTUZUMAB OZOGAMICIN
     Dosage: 0.5 MG/M2, 1X/DAY
     Route: 041
     Dates: start: 20190116, end: 20190116

REACTIONS (3)
  - Neoplasm progression [Fatal]
  - Adenovirus infection [Fatal]
  - Viraemia [Fatal]

NARRATIVE: CASE EVENT DATE: 20190206
